FAERS Safety Report 25690451 (Version 1)
Quarter: 2025Q3

REPORT INFORMATION
  Report Type: Spontaneous
  Country: US (occurrence: None)
  Receive Date: 20250815
  Receipt Date: 20250815
  Transmission Date: 20251021
  Serious: No
  Sender: FDA-CTU
  Company Number: None

PATIENT
  Age: 78 Year
  Sex: Female
  Weight: 67.5 kg

DRUGS (12)
  1. AMIODARONE [Suspect]
     Active Substance: AMIODARONE
     Indication: Atrial fibrillation
     Dosage: FREQUENCY : DAILY;?
     Route: 048
  2. FUROSEMIDE [Concomitant]
     Active Substance: FUROSEMIDE
  3. ISOSORBIDE DINITRATE [Concomitant]
     Active Substance: ISOSORBIDE DINITRATE
  4. DIAZEPAM [Concomitant]
     Active Substance: DIAZEPAM
  5. METOPROLOL [Concomitant]
     Active Substance: METOPROLOL
  6. JARDIANCE [Concomitant]
     Active Substance: EMPAGLIFLOZIN
  7. ASPIRIN [Concomitant]
     Active Substance: ASPIRIN
  8. VITAMIN C [Concomitant]
     Active Substance: ASCORBIC ACID
  9. IRON [Concomitant]
     Active Substance: IRON
  10. SENNA [Concomitant]
     Active Substance: SENNOSIDES
  11. PYRIDOXINE HYDROCHLORIDE [Concomitant]
     Active Substance: PYRIDOXINE HYDROCHLORIDE
  12. B12 [Concomitant]

REACTIONS (3)
  - Swollen tongue [None]
  - Mouth swelling [None]
  - Aphonia [None]

NARRATIVE: CASE EVENT DATE: 20250515
